FAERS Safety Report 6552890-4 (Version None)
Quarter: 2010Q1

REPORT INFORMATION
  Report Type: 
  Country: None (occurrence: None)
  Receive Date: 20100122
  Receipt Date: 20100113
  Transmission Date: 20100710
  Serious: Yes (Death)
  Sender: FDA-Public Use
  Company Number: 230002J10ITA

PATIENT
  Sex: Male

DRUGS (1)
  1. REBIF [Suspect]
     Dates: start: 20041101, end: 20090328

REACTIONS (1)
  - UNEVALUABLE EVENT [None]
